FAERS Safety Report 24404509 (Version 1)
Quarter: 2024Q4

REPORT INFORMATION
  Report Type: Spontaneous
  Country: US (occurrence: None)
  Receive Date: 20241004
  Receipt Date: 20241004
  Transmission Date: 20250115
  Serious: Yes (Hospitalization)
  Sender: Public
  Company Number: None

PATIENT
  Age: 60 Year
  Sex: Male
  Weight: 114 kg

DRUGS (1)
  1. ENOXAPARIN [Suspect]
     Active Substance: ENOXAPARIN
     Indication: Pulmonary embolism
     Dosage: FREQUENCY : TWICE A DAY;?
     Route: 058
     Dates: start: 20240506

REACTIONS (8)
  - Gastrointestinal haemorrhage [None]
  - Anaemia [None]
  - Varices oesophageal [None]
  - Oesophagitis [None]
  - Portal hypertension [None]
  - Gastrointestinal disorder [None]
  - Ulcer [None]
  - Gastritis [None]

NARRATIVE: CASE EVENT DATE: 20240517
